FAERS Safety Report 11876743 (Version 3)
Quarter: 2016Q2

REPORT INFORMATION
  Report Type: Spontaneous
  Country: US (occurrence: US)
  Receive Date: 20151229
  Receipt Date: 20160427
  Transmission Date: 20160815
  Serious: No
  Sender: FDA-Public Use
  Company Number: US-AKRIMAX-TIR-2015-0450

PATIENT
  Age: 42 Year
  Sex: Female
  Weight: 63.56 kg

DRUGS (1)
  1. TIROSINT [Suspect]
     Active Substance: LEVOTHYROXINE SODIUM
     Indication: HYPOTHYROIDISM
     Dosage: ONE 25MCG CAPSULE 4X DAILY
     Route: 048
     Dates: start: 201507, end: 20151116

REACTIONS (7)
  - Oral discomfort [Not Recovered/Not Resolved]
  - Vulvovaginal discomfort [Not Recovered/Not Resolved]
  - Urticaria [Unknown]
  - Flushing [Unknown]
  - Rash [Unknown]
  - Anorectal discomfort [Not Recovered/Not Resolved]
  - Rash erythematous [Unknown]

NARRATIVE: CASE EVENT DATE: 201507
